FAERS Safety Report 11458365 (Version 1)
Quarter: 2015Q3

REPORT INFORMATION
  Report Type: Report from Study
  Country: DK (occurrence: IT)
  Receive Date: 20150904
  Receipt Date: 20150904
  Transmission Date: 20151125
  Serious: Yes (Hospitalization)
  Sender: FDA-Public Use
  Company Number: IT-FRI-1000079295

PATIENT
  Age: 50 Year
  Sex: Female

DRUGS (4)
  1. CITALOPRAM [Suspect]
     Active Substance: CITALOPRAM HYDROBROMIDE
     Indication: DEPRESSION
     Dosage: OVERDOSE: 20 TABLET CITALOPRAM 20 MG
     Route: 048
  2. CITALOPRAM [Suspect]
     Active Substance: CITALOPRAM HYDROBROMIDE
     Indication: OVERDOSE
     Route: 048
  3. ETILTOX 200 MG COMPRESSE/DISULFIRAM [Concomitant]
     Indication: ALCOHOL ABUSE
     Route: 048
  4. ETILTOX 200 MG COMPRESSE/DISULFIRAM [Concomitant]
     Route: 048

REACTIONS (3)
  - Intentional self-injury [Recovering/Resolving]
  - Overdose [Recovered/Resolved]
  - Confusional state [Recovering/Resolving]

NARRATIVE: CASE EVENT DATE: 20150708
